FAERS Safety Report 7903208-3 (Version None)
Quarter: 2011Q4

REPORT INFORMATION
  Report Type: 
  Country: None (occurrence: None)
  Receive Date: 20111107
  Receipt Date: 20111025
  Transmission Date: 20120403
  Serious: Yes (Hospitalization, Disabling)
  Sender: FDA-Public Use
  Company Number: B0760317A

PATIENT
  Sex: Male

DRUGS (6)
  1. DIPHENHYDRAMINE HCL [Concomitant]
  2. ONDANSETRON HYDROCHLORIDE [Concomitant]
  3. BENDAMUSTINE (FORMULATION UNKNOWN) (BENDAMUSTINE) [Suspect]
     Indication: PRODUCT USED FOR UNKNOWN INDICATION
     Dosage: CYCLIC/INTRAVENOUS
     Route: 042
  4. ACETAMINOPHEN [Concomitant]
  5. HYDROCORTISONE [Concomitant]
  6. OFATUMUMAB (GENERIC) (OFATUMUMAB) [Suspect]
     Indication: PRODUCT USED FOR UNKNOWN INDICATION
     Dosage: CYCLIC/INTRAVENOUS
     Route: 042

REACTIONS (7)
  - FATIGUE [None]
  - INFUSION RELATED REACTION [None]
  - UPPER RESPIRATORY TRACT INFECTION [None]
  - ASTHENIA [None]
  - BLUNTED AFFECT [None]
  - FAILURE TO THRIVE [None]
  - NEUROTOXICITY [None]
